FAERS Safety Report 5575208-2 (Version None)
Quarter: 2007Q4

REPORT INFORMATION
  Report Type: 
  Country: None (occurrence: None)
  Receive Date: 20071227
  Receipt Date: 20071217
  Transmission Date: 20080405
  Serious: Yes (Other)
  Sender: FDA-Public Use
  Company Number: US-ELI_LILLY_AND_COMPANY-US200712003456

PATIENT
  Sex: Female

DRUGS (4)
  1. FORTEO [Suspect]
     Dosage: UNK, UNK
  2. VITAMIN D [Concomitant]
  3. VITAMIN CAP [Concomitant]
  4. LISINOPRIL [Concomitant]

REACTIONS (1)
  - PELVIC FRACTURE [None]
